FAERS Safety Report 18639961 (Version 1)
Quarter: 2020Q4

REPORT INFORMATION
  Report Type: Spontaneous
  Country: US (occurrence: US)
  Receive Date: 20201220
  Receipt Date: 20201220
  Transmission Date: 20210114
  Serious: Yes (Other)
  Sender: FDA-Public Use
  Company Number: US-PACIRA-202000050

PATIENT

DRUGS (3)
  1. BUPIVACAINE. [Suspect]
     Active Substance: BUPIVACAINE
     Indication: HIP ARTHROPLASTY
     Dosage: 20ML MIXED WITH 20ML EXPAREL
     Route: 065
  2. BUPIVACAINE. [Suspect]
     Active Substance: BUPIVACAINE
     Indication: HIP ARTHROPLASTY
     Dosage: DOSE UNKNOWN FOR SHORT ACTING BUPIVACAINE SPINAL
     Route: 065
  3. EXPAREL [Suspect]
     Active Substance: BUPIVACAINE
     Indication: HIP ARTHROPLASTY
     Dosage: 20ML MIXED WITH 20ML BUPIVACAINE
     Route: 065

REACTIONS (3)
  - Respiratory depression [Unknown]
  - Cardio-respiratory arrest [Unknown]
  - Product administration error [Unknown]
